FAERS Safety Report 4995797-6 (Version None)
Quarter: 2006Q2

REPORT INFORMATION
  Report Type: 
  Country: None (occurrence: None)
  Receive Date: 20060427
  Receipt Date: 20060418
  Transmission Date: 20061013
  Serious: Yes (Life-Threatening)
  Sender: FDA-Public Use
  Company Number: B0420982A

PATIENT
  Age: 36 Year
  Sex: Female

DRUGS (2)
  1. PAXIL [Suspect]
     Indication: ANXIETY
  2. CLARITHROMYCIN [Suspect]
     Dosage: 500 MG/TWICE PER DAY

REACTIONS (6)
  - AKATHISIA [None]
  - CLONUS [None]
  - EYE MOVEMENT DISORDER [None]
  - PYREXIA [None]
  - SEROTONIN SYNDROME [None]
  - UPPER RESPIRATORY TRACT INFECTION [None]
